FAERS Safety Report 6801363-X (Version None)
Quarter: 2010Q2

REPORT INFORMATION
  Report Type: 
  Country: None (occurrence: None)
  Receive Date: 20100629
  Receipt Date: 20100625
  Transmission Date: 20101027
  Serious: Yes (Hospitalization)
  Sender: FDA-Public Use
  Company Number: A0867215A

PATIENT
  Age: 78 Year
  Sex: Female

DRUGS (9)
  1. ADVAIR DISKUS 100/50 [Suspect]
     Indication: CHRONIC OBSTRUCTIVE PULMONARY DISEASE
     Dosage: 1PUFF TWICE PER DAY
     Route: 055
     Dates: start: 20050101
  2. SINGULAIR [Concomitant]
  3. DYAZIDE [Concomitant]
  4. MEDICATION FOR FLUID RETENTION [Concomitant]
  5. HEART MEDICATION [Concomitant]
  6. POTASSIUM [Concomitant]
  7. ALPRAZOLAM [Concomitant]
  8. CENTRUM SILVER [Concomitant]
  9. VITAMIN D [Concomitant]

REACTIONS (4)
  - BLADDER NEOPLASM [None]
  - BLOOD URINE PRESENT [None]
  - LABILE BLOOD PRESSURE [None]
  - URINARY TRACT INFECTION [None]
